FAERS Safety Report 19969945 (Version 1)
Quarter: 2021Q4

REPORT INFORMATION
  Report Type: Spontaneous
  Country: US (occurrence: US)
  Receive Date: 20211019
  Receipt Date: 20211019
  Transmission Date: 20220303
  Serious: Yes (Other)
  Sender: FDA-Public Use
  Company Number: US-SANOFI-00559540

PATIENT
  Age: 81 Year
  Sex: Male

DRUGS (1)
  1. MULTAQ [Suspect]
     Active Substance: DRONEDARONE
     Dosage: 400 MG, Q12H
     Route: 048

REACTIONS (4)
  - Cerebrovascular accident [Not Recovered/Not Resolved]
  - Transient ischaemic attack [Not Recovered/Not Resolved]
  - Speech disorder [Not Recovered/Not Resolved]
  - Unevaluable event [Unknown]
